FAERS Safety Report 7842111-4 (Version None)
Quarter: 2011Q4

REPORT INFORMATION
  Report Type: 
  Country: None (occurrence: None)
  Receive Date: 20111025
  Receipt Date: 20111018
  Transmission Date: 20120403
  Serious: Yes (Other)
  Sender: FDA-Public Use
  Company Number: PL-PFIZER INC-2011242355

PATIENT
  Age: 31 Year
  Sex: Male

DRUGS (2)
  1. SIROLIMUS [Suspect]
     Dosage: 1 MG, UNK
  2. SIROLIMUS [Suspect]
     Indication: IMMUNOSUPPRESSION
     Dosage: 3 MG, UNK

REACTIONS (3)
  - MYOCARDIAL INFARCTION [None]
  - ARTERIOSCLEROSIS [None]
  - HYPERLIPIDAEMIA [None]
